FAERS Safety Report 22340457 (Version 4)
Quarter: 2023Q4

REPORT INFORMATION
  Report Type: Report from Study
  Country: FR (occurrence: None)
  Receive Date: 20230518
  Receipt Date: 20231123
  Transmission Date: 20240109
  Serious: Yes (Death, Hospitalization)
  Sender: FDA-Public Use
  Company Number: FR-ROCHE-3265537

PATIENT
  Age: 68 Year
  Sex: Male
  Weight: 94 kg

DRUGS (6)
  1. ATEZOLIZUMAB [Suspect]
     Active Substance: ATEZOLIZUMAB
     Indication: Lung adenocarcinoma
     Dosage: DATE OF LAST ADMINISTRATION BEFORE SAE 09/JAN/2023, LAST DOSE ADMINISTERED BEFORE SAE 1.5 MG, CUMULA
     Route: 041
     Dates: start: 20221121
  2. INVESTIGATIONAL PRODUCT [Suspect]
     Active Substance: INVESTIGATIONAL PRODUCT
     Indication: Lung adenocarcinoma
     Dosage: DATE OF LAST ADMINISTRATION BEFORE SAE 09/JAN/2023, LAST DOSE ADMINISTERED BEFORE SAE 1200 MG, CUMUL
     Route: 042
     Dates: start: 20221121
  3. CANDESARTAN [Concomitant]
     Active Substance: CANDESARTAN
     Indication: Hypertension
     Dosage: HIGH BLOOD PRESSURE
  4. NEBIVOLOL [Concomitant]
     Active Substance: NEBIVOLOL
     Indication: Infection
     Dosage: INDICATION INFRACTION
  5. ASPIRIN [Concomitant]
     Active Substance: ASPIRIN
     Indication: Infection
     Dosage: INDICATION INFRACTION
  6. ROSUVASTATIN [Concomitant]
     Active Substance: ROSUVASTATIN
     Indication: Infection
     Dosage: INDICATION INFRACTION

REACTIONS (3)
  - Dyspnoea [Fatal]
  - Pleural effusion [Recovered/Resolved]
  - Disease progression [Fatal]

NARRATIVE: CASE EVENT DATE: 20230109
